FAERS Safety Report 15337574 (Version 4)
Quarter: 2018Q3

REPORT INFORMATION
  Report Type: Spontaneous
  Country: US (occurrence: US)
  Receive Date: 20180831
  Receipt Date: 20180921
  Transmission Date: 20181010
  Serious: No
  Sender: FDA-Public Use
  Company Number: US-PFIZER INC-2018345908

PATIENT
  Age: 54 Year
  Sex: Female
  Weight: 63 kg

DRUGS (1)
  1. ESTRING [Suspect]
     Active Substance: ESTRADIOL
     Indication: VULVOVAGINAL DRYNESS
     Dosage: 2 MG, UNK

REACTIONS (8)
  - Product use issue [Unknown]
  - Pain [Unknown]
  - Poor quality drug administered [Unknown]
  - Vulvovaginal burning sensation [Unknown]
  - Product quality issue [Unknown]
  - Muscle spasms [Unknown]
  - Gait disturbance [Unknown]
  - Vulvovaginal discomfort [Unknown]
